FAERS Safety Report 4330272-3 (Version None)
Quarter: 2004Q1

REPORT INFORMATION
  Report Type: 
  Country: None (occurrence: None)
  Receive Date: 20040329
  Receipt Date: 20040317
  Transmission Date: 20041129
  Serious: Yes (Death, Other)
  Sender: FDA-Public Use
  Company Number: 2004011337

PATIENT
  Sex: Male

DRUGS (6)
  1. LIPITOR [Suspect]
     Indication: LIPIDS
     Dosage: 10 MG (NIGHTLY), ORAL
     Route: 048
     Dates: start: 20021122, end: 20030901
  2. PERINDOPRIL (PERINDOPRIL) [Concomitant]
  3. ATENOLOL [Concomitant]
  4. INDAPAMIDE [Concomitant]
  5. GLICLAZIDE (GLICLAZIDE) [Concomitant]
  6. METFORMIN HCL [Concomitant]

REACTIONS (1)
  - DEATH [None]
